FAERS Safety Report 23158942 (Version 1)
Quarter: 2023Q4

REPORT INFORMATION
  Report Type: Spontaneous
  Country: PL (occurrence: None)
  Receive Date: 20231108
  Receipt Date: 20231108
  Transmission Date: 20240110
  Serious: Yes (Other)
  Sender: FDA-Public Use
  Company Number: 2023A250272

PATIENT
  Sex: Male
  Weight: 65 kg

DRUGS (1)
  1. IMFINZI [Suspect]
     Active Substance: DURVALUMAB
     Indication: Bile duct cancer stage IV
     Route: 042
     Dates: start: 202305, end: 202310

REACTIONS (1)
  - Malignant neoplasm progression [Unknown]
